FAERS Safety Report 21130848 (Version 2)
Quarter: 2022Q3

REPORT INFORMATION
  Report Type: Spontaneous
  Country: SE (occurrence: SE)
  Receive Date: 20220726
  Receipt Date: 20220801
  Transmission Date: 20221027
  Serious: Yes (Other)
  Sender: FDA-Public Use
  Company Number: SE-CELLTRION INC.-2022SE011507

PATIENT

DRUGS (1)
  1. RITUXIMAB [Suspect]
     Active Substance: RITUXIMAB
     Indication: Multiple sclerosis

REACTIONS (6)
  - Empyema [Unknown]
  - Abdominal abscess [Unknown]
  - Urinary tract disorder [Unknown]
  - Bartholinitis [Unknown]
  - Ureaplasma infection [Unknown]
  - Off label use [Unknown]
